FAERS Safety Report 11998949 (Version 1)
Quarter: 2016Q1

REPORT INFORMATION
  Report Type: Spontaneous
  Country: US (occurrence: None)
  Receive Date: 20160203
  Receipt Date: 20160203
  Transmission Date: 20160526
  Serious: Yes (Disabling)
  Sender: FDA-Public Use
  Company Number: None

PATIENT
  Age: 57 Year
  Sex: Female
  Weight: 108.86 kg

DRUGS (1)
  1. DULOXETINE. [Suspect]
     Active Substance: DULOXETINE
     Indication: DEPRESSION
     Dosage: 60 MG PILLS 2 60 MG A DAY MOUTH
     Route: 048
     Dates: start: 20141014, end: 20160110

REACTIONS (5)
  - Headache [None]
  - Arthralgia [None]
  - Aggression [None]
  - Irritability [None]
  - Memory impairment [None]

NARRATIVE: CASE EVENT DATE: 20151014
